FAERS Safety Report 19942284 (Version 2)
Quarter: 2021Q4

REPORT INFORMATION
  Report Type: Report from Study
  Country: PL (occurrence: PL)
  Receive Date: 20211011
  Receipt Date: 20211022
  Transmission Date: 20220304
  Serious: No
  Sender: FDA-Public Use
  Company Number: PL-CELGENE-POL-20211000531

PATIENT
  Sex: Female

DRUGS (6)
  1. OZANIMOD [Suspect]
     Active Substance: OZANIMOD
     Indication: Relapsing multiple sclerosis
     Route: 048
     Dates: start: 20160326, end: 20210324
  2. Luteina [Concomitant]
     Indication: Supplementation therapy
     Route: 048
  3. METFORMIN HYDROCHLORIDE [Concomitant]
     Active Substance: METFORMIN HYDROCHLORIDE
     Indication: Diabetes mellitus
     Dosage: 1000 MILLIGRAM
     Route: 048
     Dates: start: 20190610
  4. METFORMIN HYDROCHLORIDE [Concomitant]
     Active Substance: METFORMIN HYDROCHLORIDE
     Dosage: 1000 MILLIGRAM
     Route: 048
     Dates: start: 20190610
  5. Nilogrin [Concomitant]
     Indication: Dizziness
     Dosage: 20 MILLIGRAM
     Route: 048
     Dates: start: 20151218
  6. Nilogrin [Concomitant]
     Indication: Headache
     Route: 048
     Dates: start: 20200420

REACTIONS (1)
  - Hypothyroidism [Recovering/Resolving]

NARRATIVE: CASE EVENT DATE: 20161120
